FAERS Safety Report 4347609-1 (Version None)
Quarter: 2004Q2

REPORT INFORMATION
  Report Type: 
  Country: None (occurrence: None)
  Receive Date: 20040426
  Receipt Date: 20040426
  Transmission Date: 20050107
  Serious: Yes (Other)
  Sender: FDA-Public Use
  Company Number: None

PATIENT
  Age: 43 Year
  Sex: Female
  Weight: 60.3284 kg

DRUGS (1)
  1. PROZAC [Suspect]
     Indication: ANXIETY DISORDER
     Dosage: 40 MG DAILY
     Dates: start: 20020903, end: 20031222

REACTIONS (1)
  - PHARMACEUTICAL PRODUCT COMPLAINT [None]
